FAERS Safety Report 14286346 (Version 2)
Quarter: 2018Q1

REPORT INFORMATION
  Report Type: Spontaneous
  Country: CH (occurrence: CH)
  Receive Date: 20171214
  Receipt Date: 20180111
  Transmission Date: 20180509
  Serious: Yes (Hospitalization)
  Sender: FDA-Public Use
  Company Number: CH-ROCHE-2039846

PATIENT
  Age: 74 Year
  Sex: Female

DRUGS (1)
  1. BONVIVA [Suspect]
     Active Substance: IBANDRONATE SODIUM
     Indication: OSTEOPOROSIS
     Route: 042
     Dates: start: 201203

REACTIONS (7)
  - Decreased appetite [Not Recovered/Not Resolved]
  - Venous thrombosis [Recovering/Resolving]
  - Malnutrition [Not Recovered/Not Resolved]
  - Syncope [Recovered/Resolved]
  - Pulmonary embolism [Recovering/Resolving]
  - Weight decreased [Not Recovered/Not Resolved]
  - Goitre [Not Recovered/Not Resolved]

NARRATIVE: CASE EVENT DATE: 2016
